FAERS Safety Report 6084412-9 (Version None)
Quarter: 2009Q1

REPORT INFORMATION
  Report Type: 
  Country: None (occurrence: None)
  Receive Date: 20090219
  Receipt Date: 20090213
  Transmission Date: 20090719
  Serious: Yes (Other)
  Sender: FDA-Public Use
  Company Number: B0506173A

PATIENT
  Age: 34 Year
  Sex: Female

DRUGS (3)
  1. COMBIVIR [Suspect]
     Indication: HIV INFECTION
     Dosage: 1TAB TWICE PER DAY
     Route: 048
     Dates: start: 20030912
  2. TENOFOVIR [Suspect]
     Indication: HIV INFECTION
     Dosage: 300MG PER DAY
     Route: 048
  3. COTRIMOXAZOLE [Concomitant]

REACTIONS (2)
  - LIPOMATOSIS [None]
  - LOCAL SWELLING [None]
